FAERS Safety Report 6414104-5 (Version None)
Quarter: 2009Q4

REPORT INFORMATION
  Report Type: 
  Country: None (occurrence: None)
  Receive Date: 20091026
  Receipt Date: 20091015
  Transmission Date: 20100525
  Serious: Yes (Hospitalization, Other)
  Sender: FDA-Public Use
  Company Number: US-MERCK-0901USA00892

PATIENT
  Age: 64 Year
  Sex: Female
  Weight: 54 kg

DRUGS (4)
  1. FOSAMAX [Suspect]
     Indication: OSTEOPENIA
     Route: 048
     Dates: start: 20050801, end: 20080301
  2. HYDRALAZINE [Concomitant]
     Route: 065
  3. DILTIAZEM HYDROCHLORIDE [Concomitant]
     Route: 065
  4. PREMARIN [Concomitant]
     Route: 065
     Dates: start: 19800101, end: 20040101

REACTIONS (21)
  - ADVERSE DRUG REACTION [None]
  - AORTIC STENOSIS [None]
  - CARPAL TUNNEL SYNDROME [None]
  - DIVERTICULUM [None]
  - DRUG INTOLERANCE [None]
  - DYSPHAGIA [None]
  - FATIGUE [None]
  - HYPERCALCAEMIA [None]
  - HYPERCHOLESTEROLAEMIA [None]
  - OROPHARYNGEAL PLAQUE [None]
  - OSTEOMYELITIS [None]
  - OSTEONECROSIS [None]
  - PARAESTHESIA [None]
  - POST PROCEDURAL COMPLICATION [None]
  - RADICULOPATHY [None]
  - RHINITIS ALLERGIC [None]
  - SPINAL DISORDER [None]
  - TOOTH INFECTION [None]
  - TREATMENT NONCOMPLIANCE [None]
  - VERTIGO POSITIONAL [None]
  - VITAMIN D DEFICIENCY [None]
